FAERS Safety Report 7204602-9 (Version None)
Quarter: 2010Q4

REPORT INFORMATION
  Report Type: 
  Country: None (occurrence: None)
  Receive Date: 20101230
  Receipt Date: 20101220
  Transmission Date: 20110411
  Serious: Yes (Other)
  Sender: FDA-Public Use
  Company Number: US-MERCK-1011USA00041

PATIENT
  Sex: Female

DRUGS (3)
  1. ZOCOR [Suspect]
     Indication: BLOOD CHOLESTEROL INCREASED
     Route: 048
     Dates: start: 20080101, end: 20090101
  2. ZOCOR [Suspect]
     Route: 048
     Dates: start: 20090701, end: 20100913
  3. ADVIL [Concomitant]
     Route: 065
     Dates: start: 19950101, end: 20100101

REACTIONS (9)
  - ARTHRITIS [None]
  - DEPRESSION [None]
  - DRUG INEFFECTIVE [None]
  - FATIGUE [None]
  - GAIT DISTURBANCE [None]
  - LABORATORY TEST ABNORMAL [None]
  - MYALGIA [None]
  - SLEEP DISORDER [None]
  - SUICIDAL IDEATION [None]
